FAERS Safety Report 22021141 (Version 1)
Quarter: 2023Q1

REPORT INFORMATION
  Report Type: Spontaneous
  Country: US (occurrence: None)
  Receive Date: 20230217
  Receipt Date: 20230217
  Transmission Date: 20230418
  Serious: Yes (Death)
  Sender: FDA-Public Use
  Company Number: None

PATIENT
  Sex: Female

DRUGS (2)
  1. TRACLEER [Suspect]
     Active Substance: BOSENTAN
     Indication: Pulmonary hypertension
     Dosage: FREQUENCY : TWICE A DAY;?
     Route: 048
     Dates: start: 20221014, end: 20230119
  2. BOSENTAN [Concomitant]
     Active Substance: BOSENTAN

REACTIONS (2)
  - Hospice care [None]
  - Palliative care [None]

NARRATIVE: CASE EVENT DATE: 20230119
